FAERS Safety Report 26111411 (Version 1)
Quarter: 2025Q4

REPORT INFORMATION
  Report Type: Report from Study
  Country: CO (occurrence: CO)
  Receive Date: 20251202
  Receipt Date: 20251202
  Transmission Date: 20260117
  Serious: Yes (Other)
  Sender: ABBVIE
  Company Number: CO-ABBVIE-6570453

PATIENT
  Age: 55 Year
  Sex: Female
  Weight: 103 kg

DRUGS (1)
  1. SKYRIZI [Suspect]
     Active Substance: RISANKIZUMAB-RZAA
     Indication: Psoriasis
     Route: 058
     Dates: start: 20220630, end: 20250714

REACTIONS (3)
  - Vaginal haemorrhage [Recovering/Resolving]
  - Vaginal haemorrhage [Recovered/Resolved]
  - Endometrial hyperplasia [Recovered/Resolved]

NARRATIVE: CASE EVENT DATE: 20220101
